FAERS Safety Report 24701015 (Version 1)
Quarter: 2024Q4

REPORT INFORMATION
  Report Type: Spontaneous
  Country: US (occurrence: US)
  Receive Date: 20241205
  Receipt Date: 20241205
  Transmission Date: 20250115
  Serious: No
  Sender: MERCK
  Company Number: US-009507513-2411USA003022

PATIENT
  Sex: Male

DRUGS (2)
  1. EMEND [Suspect]
     Active Substance: APREPITANT
     Indication: Cyclic vomiting syndrome
     Dosage: 125MG ORAL CAPSULES TWICE A WEEK
     Route: 048
  2. EMEND [Suspect]
     Active Substance: APREPITANT
     Indication: Nausea

REACTIONS (3)
  - Product use in unapproved indication [Unknown]
  - Inappropriate schedule of product administration [Unknown]
  - No adverse event [Unknown]
